FAERS Safety Report 25338107 (Version 1)
Quarter: 2025Q2

REPORT INFORMATION
  Report Type: Spontaneous
  Country: US (occurrence: US)
  Receive Date: 20250520
  Receipt Date: 20250520
  Transmission Date: 20250717
  Serious: Yes (Other)
  Sender: ALEXION PHARMACEUTICALS
  Company Number: US-AstraZeneca-CH-00872330A

PATIENT

DRUGS (1)
  1. WAINUA [Suspect]
     Active Substance: EPLONTERSEN
     Indication: Cardiac amyloidosis
     Dosage: UNK UNK, QMONTH

REACTIONS (3)
  - Cranial nerve paralysis [Unknown]
  - Brain neoplasm benign [Unknown]
  - Diplopia [Unknown]
